FAERS Safety Report 4816060-X (Version None)
Quarter: 2005Q4

REPORT INFORMATION
  Report Type: 
  Country: None (occurrence: None)
  Receive Date: 20051026
  Receipt Date: 20051011
  Transmission Date: 20060501
  Serious: Yes (Other)
  Sender: FDA-Public Use
  Company Number: USA0509109045

PATIENT
  Age: 58 Year
  Sex: Male

DRUGS (3)
  1. CIALIS [Suspect]
     Indication: ERECTILE DYSFUNCTION
     Dosage: 20 MG/1 AS NEEDED
     Dates: start: 20050101, end: 20050701
  2. ALBUTEROL [Concomitant]
  3. DEPO-TESTOSTERNE (TESTOSTERONE CIPIONATE) [Concomitant]

REACTIONS (5)
  - ALTERED VISUAL DEPTH PERCEPTION [None]
  - AMAUROSIS FUGAX [None]
  - BLINDNESS TRANSIENT [None]
  - CATARACT [None]
  - VISION BLURRED [None]
